FAERS Safety Report 4506792-5 (Version None)
Quarter: 2004Q4

REPORT INFORMATION
  Report Type: 
  Country: None (occurrence: None)
  Receive Date: 20041117
  Receipt Date: 20041104
  Transmission Date: 20050328
  Serious: Yes (Hospitalization)
  Sender: FDA-Public Use
  Company Number: 2004UW22807

PATIENT
  Age: 65 Year
  Sex: Male

DRUGS (3)
  1. XYLOCAINE [Suspect]
     Dosage: 10 MG/ML RB
     Route: 056
     Dates: start: 20041022
  2. KENALOG [Suspect]
     Dosage: 40 RB
     Route: 056
     Dates: start: 20041022
  3. CELEBREX [Suspect]

REACTIONS (2)
  - STAPHYLOCOCCAL SEPSIS [None]
  - UNEVALUABLE EVENT [None]
